FAERS Safety Report 5963946-9 (Version None)
Quarter: 2008Q4

REPORT INFORMATION
  Report Type: 
  Country: None (occurrence: None)
  Receive Date: 20081120
  Receipt Date: 20081112
  Transmission Date: 20090506
  Serious: Yes (Other)
  Sender: FDA-Public Use
  Company Number: B0546622A

PATIENT
  Age: 55 Year
  Sex: Female

DRUGS (1)
  1. AMOXICILLIN TRIHYDRATE [Suspect]
     Indication: PNEUMONIA
     Dosage: UNK UNK ORAL
     Route: 048

REACTIONS (2)
  - ACUTE PSYCHOSIS [None]
  - SPEECH DISORDER [None]
